FAERS Safety Report 6637309-7 (Version None)
Quarter: 2010Q1

REPORT INFORMATION
  Report Type: 
  Country: None (occurrence: None)
  Receive Date: 20100316
  Receipt Date: 20100205
  Transmission Date: 20100710
  Serious: No
  Sender: FDA-Public Use
  Company Number: US-ABBOTT-10P-163-0624928-00

PATIENT
  Sex: Male
  Weight: 118.04 kg

DRUGS (11)
  1. TRILIPIX [Suspect]
     Indication: BLOOD CHOLESTEROL INCREASED
     Dosage: EVERY MORNING
     Dates: start: 20091001
  2. DILTIAZEM HCL [Concomitant]
     Indication: ANGINA PECTORIS
  3. NITROGLYCERIN [Concomitant]
     Indication: ANGINA PECTORIS
  4. LISINOPRIL [Concomitant]
     Indication: HYPERTENSION
  5. NIACIN [Concomitant]
     Indication: BLOOD CHOLESTEROL INCREASED
     Dosage: EVERY NIGHT
  6. METFORMIN HYDROCHLORIDE [Concomitant]
     Indication: DIABETES MELLITUS
  7. PRANDIN [Concomitant]
     Indication: DIABETES MELLITUS
  8. LANTUS [Concomitant]
     Indication: DIABETES MELLITUS
  9. ASPIRIN [Concomitant]
     Indication: DRUG USE FOR UNKNOWN INDICATION
  10. VALIUM [Concomitant]
     Indication: FEELING OF RELAXATION
  11. TYLENOL-500 [Concomitant]
     Indication: BACK PAIN

REACTIONS (4)
  - BLOOD CHOLESTEROL INCREASED [None]
  - BLOOD TRIGLYCERIDES INCREASED [None]
  - HIGH DENSITY LIPOPROTEIN DECREASED [None]
  - LOW DENSITY LIPOPROTEIN INCREASED [None]
